APPROVED DRUG PRODUCT: DILAUDID
Active Ingredient: HYDROMORPHONE HYDROCHLORIDE
Strength: 8MG
Dosage Form/Route: TABLET;ORAL
Application: N019892 | Product #001 | TE Code: AB
Applicant: RHODES PHARMACEUTICALS LP
Approved: Dec 7, 1992 | RLD: Yes | RS: Yes | Type: RX